FAERS Safety Report 12093717 (Version 1)
Quarter: 2016Q1

REPORT INFORMATION
  Report Type: Spontaneous
  Country: CA (occurrence: CA)
  Receive Date: 20160219
  Receipt Date: 20160219
  Transmission Date: 20160526
  Serious: Yes (Other)
  Sender: FDA-Public Use
  Company Number: CA-PFIZER INC-2016087736

PATIENT
  Age: 68 Year
  Sex: Female

DRUGS (10)
  1. ASA [Concomitant]
     Active Substance: ASPIRIN
  2. METOPROLOL. [Concomitant]
     Active Substance: METOPROLOL
  3. ROSUVASTATIN [Suspect]
     Active Substance: ROSUVASTATIN
     Dosage: 10 MG, 1X/DAY
     Route: 048
  4. CALCIUM [Concomitant]
     Active Substance: CALCIUM
  5. FOSAMAX [Concomitant]
     Active Substance: ALENDRONATE SODIUM
  6. LIPITOR [Suspect]
     Active Substance: ATORVASTATIN CALCIUM
     Dosage: 20 MG, 1X/DAY
     Route: 048
  7. C.E.S. TABLETS [Concomitant]
  8. ADVAIR HFA [Concomitant]
     Active Substance: FLUTICASONE PROPIONATE\SALMETEROL XINAFOATE
  9. ALTACE [Concomitant]
     Active Substance: RAMIPRIL
  10. SALBUTAMOL [Concomitant]
     Active Substance: ALBUTEROL

REACTIONS (3)
  - Hypokinesia [Recovered/Resolved]
  - Myalgia [Recovered/Resolved]
  - Rash macular [Recovered/Resolved]
